FAERS Safety Report 10623376 (Version 4)
Quarter: 2015Q1

REPORT INFORMATION
  Report Type: Spontaneous
  Country: US (occurrence: US)
  Receive Date: 20141203
  Receipt Date: 20150319
  Transmission Date: 20150720
  Serious: Yes (Other)
  Sender: FDA-Public Use
  Company Number: US-PFIZER INC-2014330899

PATIENT
  Age: 72 Year
  Sex: Female

DRUGS (4)
  1. LYRICA [Suspect]
     Active Substance: PREGABALIN
     Dosage: 4 DF, DAILY
  2. LYRICA [Suspect]
     Active Substance: PREGABALIN
     Dosage: 3 DF, DAILY
  3. LYRICA [Suspect]
     Active Substance: PREGABALIN
     Dosage: 75 MG, QD ( EVERY DAY)
     Dates: start: 2014
  4. OXYCODONE [Concomitant]
     Active Substance: OXYCODONE
     Dosage: UNK
     Dates: start: 1999

REACTIONS (8)
  - Back disorder [Unknown]
  - Back pain [Unknown]
  - Hallucination [Unknown]
  - Pain in extremity [Not Recovered/Not Resolved]
  - Vertebral lesion [Unknown]
  - Discomfort [Not Recovered/Not Resolved]
  - Peripheral coldness [Not Recovered/Not Resolved]
  - Nerve injury [Unknown]

NARRATIVE: CASE EVENT DATE: 20130706
